FAERS Safety Report 25286113 (Version 1)
Quarter: 2025Q2

REPORT INFORMATION
  Report Type: Spontaneous
  Country: GB (occurrence: GB)
  Receive Date: 20250509
  Receipt Date: 20250509
  Transmission Date: 20250717
  Serious: Yes (Other)
  Sender: AUROBINDO
  Company Number: GB-MHRA-MED-202504241131596260-MGQYL

PATIENT
  Age: 97 Year
  Sex: Female

DRUGS (1)
  1. NITROFURANTOIN [Suspect]
     Active Substance: NITROFURANTOIN
     Indication: Product used for unknown indication
     Route: 065

REACTIONS (5)
  - Depression [Recovered/Resolved]
  - Muscular weakness [Not Recovered/Not Resolved]
  - Confusional state [Recovered/Resolved]
  - Diarrhoea [Recovered/Resolved]
  - Somnolence [Recovering/Resolving]
